FAERS Safety Report 10621558 (Version 2)
Quarter: 2015Q2

REPORT INFORMATION
  Report Type: Spontaneous
  Country: US (occurrence: US)
  Receive Date: 20141203
  Receipt Date: 20150417
  Transmission Date: 20150821
  Serious: Yes (Hospitalization, Other)
  Sender: FDA-Public Use
  Company Number: US-UCBSA-2014019800

PATIENT
  Age: 81 Year
  Sex: Male
  Weight: 108 kg

DRUGS (3)
  1. TAMSULOSIN [Concomitant]
     Active Substance: TAMSULOSIN
     Indication: PROSTATOMEGALY
     Dosage: 4 MG, 2X/DAY (BID)
     Route: 048
     Dates: start: 201410
  2. VIMPAT [Suspect]
     Active Substance: LACOSAMIDE
     Indication: SEIZURE
     Dosage: 200 MG, 2X/DAY (BID)
     Route: 048
     Dates: start: 201407
  3. KEPPRA [Suspect]
     Active Substance: LEVETIRACETAM
     Indication: SEIZURE
     Dosage: 1000 MG, 2X/DAY (BID)
     Route: 048
     Dates: start: 201406

REACTIONS (9)
  - Herpes zoster [Recovered/Resolved]
  - Fall [Unknown]
  - Urinary retention [Not Recovered/Not Resolved]
  - Limb injury [Recovered/Resolved]
  - Cataract [Unknown]
  - Pain in extremity [Recovered/Resolved]
  - Skin cancer [Recovered/Resolved]
  - Prostatomegaly [Unknown]
  - Cystitis [Recovered/Resolved]

NARRATIVE: CASE EVENT DATE: 2014
